FAERS Safety Report 5329406-3 (Version None)
Quarter: 2007Q2

REPORT INFORMATION
  Report Type: 
  Country: None (occurrence: None)
  Receive Date: 20070223
  Receipt Date: 20060119
  Transmission Date: 20071010
  Serious: Yes (Hospitalization)
  Sender: FDA-Public Use
  Company Number: WAES 0512USA03183

PATIENT
  Age: 65 Year
  Sex: Female

DRUGS (14)
  1. ZOCOR [Suspect]
     Dosage: SEE IMAGE
     Route: 048
     Dates: start: 20030303, end: 20030101
  2. ZOCOR [Suspect]
     Dosage: SEE IMAGE
     Route: 048
     Dates: start: 20030101, end: 20030306
  3. GEMFIBROZIL [Suspect]
     Dates: end: 20030301
  4. COZAAR [Concomitant]
  5. DILTIAZEM HCL [Concomitant]
  6. HUMULIN N [Concomitant]
  7. HYDRODIURIL [Concomitant]
  8. NOVOLIN 50/50 [Concomitant]
  9. PROCRIT [Concomitant]
  10. QVAR 40 [Concomitant]
  11. REGULAR INSULIN [Concomitant]
  12. ALBUTEROL [Concomitant]
  13. CLONIDINE [Concomitant]
  14. GLIPIZIDE [Concomitant]

REACTIONS (8)
  - ACTINIC KERATOSIS [None]
  - BLOOD GLUCOSE DECREASED [None]
  - COUGH [None]
  - HYPERPARATHYROIDISM [None]
  - LIVER FUNCTION TEST ABNORMAL [None]
  - PRESCRIBED OVERDOSE [None]
  - RENAL FAILURE ACUTE [None]
  - RHABDOMYOLYSIS [None]
